FAERS Safety Report 9555636 (Version 4)
Quarter: 2014Q1

REPORT INFORMATION
  Report Type: Spontaneous
  Country: IE (occurrence: IE)
  Receive Date: 20130926
  Receipt Date: 20140319
  Transmission Date: 20141002
  Serious: Yes (Hospitalization)
  Sender: FDA-Public Use
  Company Number: PHFR2013IE004000

PATIENT
  Age: 39 Year
  Sex: Female

DRUGS (7)
  1. CLOZARIL [Suspect]
     Indication: SCHIZOPHRENIA
     Dosage: 275 MG, UNK
     Route: 048
     Dates: start: 20130423
  2. DALMANE [Suspect]
     Dosage: 30 MG, UNK
     Route: 048
  3. DALMANE [Suspect]
     Dosage: 75 MG, 30 TABLETS
  4. ARIPIPRAZOLE [Concomitant]
     Dosage: 15 MG, UNK
     Route: 048
     Dates: start: 201203
  5. EFEXOR XL [Concomitant]
     Dosage: 375 MG, UNK
     Route: 048
     Dates: start: 201107
  6. LANTUS [Concomitant]
     Indication: TYPE 1 DIABETES MELLITUS
     Dosage: 20 U, UNK
     Route: 058
  7. HUMALOG [Concomitant]
     Indication: TYPE 1 DIABETES MELLITUS
     Dosage: UNK UKN, UNK

REACTIONS (6)
  - Suicidal ideation [Not Recovered/Not Resolved]
  - Schizophrenia [Unknown]
  - Mental disorder [Not Recovered/Not Resolved]
  - Overdose [Unknown]
  - White blood cell count increased [Recovered/Resolved]
  - Neutrophil count increased [Recovered/Resolved]
